FAERS Safety Report 8343755-6 (Version None)
Quarter: 2012Q2

REPORT INFORMATION
  Report Type: 
  Country: None (occurrence: None)
  Receive Date: 20120508
  Receipt Date: 20120508
  Transmission Date: 20120825
  Serious: Yes (Other)
  Sender: FDA-Public Use
  Company Number: None

PATIENT
  Age: 25 Year
  Sex: Female
  Weight: 54.431 kg

DRUGS (1)
  1. NORETHINDRONE [Suspect]
     Indication: CONTRACEPTION
     Dates: start: 20100101, end: 20111220

REACTIONS (4)
  - PREGNANCY ON ORAL CONTRACEPTIVE [None]
  - MATERNAL EXPOSURE DURING PREGNANCY [None]
  - HAEMORRHAGE IN PREGNANCY [None]
  - PRODUCT PACKAGING QUANTITY ISSUE [None]
